FAERS Safety Report 8489745-4 (Version None)
Quarter: 2012Q3

REPORT INFORMATION
  Report Type: 
  Country: None (occurrence: None)
  Receive Date: 20120705
  Receipt Date: 20120702
  Transmission Date: 20120928
  Serious: Yes (Other)
  Sender: FDA-Public Use
  Company Number: NO-GLAXOSMITHKLINE-B0812133A

PATIENT
  Sex: Female

DRUGS (2)
  1. WELLBUTRIN [Suspect]
     Indication: BIPOLAR II DISORDER
     Dosage: 300MG PER DAY
     Route: 065
  2. LAMICTAL [Suspect]
     Indication: BIPOLAR II DISORDER
     Dosage: 75MG PER DAY
     Route: 065

REACTIONS (4)
  - SUICIDE ATTEMPT [None]
  - BRUXISM [None]
  - HEADACHE [None]
  - PAIN IN JAW [None]
